FAERS Safety Report 23898043 (Version 17)
Quarter: 2025Q3

REPORT INFORMATION
  Report Type: Spontaneous
  Country: US (occurrence: US)
  Receive Date: 20240524
  Receipt Date: 20250811
  Transmission Date: 20251020
  Serious: Yes (Other)
  Sender: SANOFI AVENTIS
  Company Number: US-SA-SAC20240522000808

PATIENT
  Age: 36 Year
  Sex: Female
  Weight: 67.13 kg

DRUGS (56)
  1. DUPIXENT [Suspect]
     Active Substance: DUPILUMAB
     Indication: Asthma
     Dosage: 300 MG, QOW
     Route: 058
  2. DUPIXENT [Suspect]
     Active Substance: DUPILUMAB
     Indication: Chronic rhinosinusitis with nasal polyps
  3. DUPIXENT [Suspect]
     Active Substance: DUPILUMAB
     Indication: Asthma
     Dosage: 300 MG, QOW
     Route: 058
  4. DUPIXENT [Suspect]
     Active Substance: DUPILUMAB
     Indication: Chronic rhinosinusitis with nasal polyps
  5. DUPIXENT [Suspect]
     Active Substance: DUPILUMAB
     Indication: Hypogammaglobulinaemia
  6. DUPIXENT [Suspect]
     Active Substance: DUPILUMAB
     Indication: Chronic sinusitis
  7. DUPIXENT [Suspect]
     Active Substance: DUPILUMAB
     Indication: Nasal polyps
  8. DUPIXENT [Suspect]
     Active Substance: DUPILUMAB
     Indication: Migraine
  9. DUPIXENT [Suspect]
     Active Substance: DUPILUMAB
     Indication: Anaemia
  10. DUPIXENT [Suspect]
     Active Substance: DUPILUMAB
     Indication: Viral infection
  11. GAMUNEX [Concomitant]
     Active Substance: HUMAN IMMUNOGLOBULIN G
  12. LIDOCAINE [Concomitant]
     Active Substance: LIDOCAINE
  13. EPINEPHRINE [Concomitant]
     Active Substance: EPINEPHRINE
  14. DIPHENHYDRAMINE HYDROCHLORIDE [Concomitant]
     Active Substance: DIPHENHYDRAMINE HYDROCHLORIDE
  15. ACETAMINOPHEN [Concomitant]
     Active Substance: ACETAMINOPHEN
  16. FLUVOXAMINE MALEATE [Concomitant]
     Active Substance: FLUVOXAMINE MALEATE
  17. PEPCID AC [Concomitant]
     Active Substance: FAMOTIDINE
  18. QNASL [Concomitant]
     Active Substance: BECLOMETHASONE DIPROPIONATE
  19. UBRELVY [Concomitant]
     Active Substance: UBROGEPANT
  20. DIETARY SUPPLEMENT [Concomitant]
     Active Substance: DIETARY SUPPLEMENT
  21. FLUDROCORTISONE ACETATE [Concomitant]
     Active Substance: FLUDROCORTISONE ACETATE
  22. SODIUM CHLORIDE [Concomitant]
     Active Substance: SODIUM CHLORIDE
  23. XOPENEX HFA [Concomitant]
     Active Substance: LEVALBUTEROL TARTRATE
  24. SYMBICORT [Concomitant]
     Active Substance: BUDESONIDE\FORMOTEROL FUMARATE DIHYDRATE
     Indication: Asthma
  25. LEVALBUTEROL HYDROCHLORIDE [Concomitant]
     Active Substance: LEVALBUTEROL HYDROCHLORIDE
  26. SPIRIVA RESPIMAT [Concomitant]
     Active Substance: TIOTROPIUM BROMIDE
  27. CORLANOR [Concomitant]
     Active Substance: IVABRADINE HYDROCHLORIDE
  28. MONTELUKAST SODIUM [Concomitant]
     Active Substance: MONTELUKAST SODIUM
     Indication: Asthma
  29. TOPIRAMATE [Concomitant]
     Active Substance: TOPIRAMATE
  30. MIDODRINE HYDROCHLORIDE [Concomitant]
     Active Substance: MIDODRINE HYDROCHLORIDE
  31. MAGNESIUM [Concomitant]
     Active Substance: MAGNESIUM
  32. DEXTROSE [Concomitant]
     Active Substance: DEXTROSE MONOHYDRATE
  33. VITAMIN B COMPLEX [Concomitant]
     Active Substance: CYANOCOBALAMIN\DEXPANTHENOL\NIACINAMIDE\PYRIDOXINE HYDROCHLORIDE\RIBOFLAVIN 5^-PHOSPHATE SODIUM\THIA
  34. ZYRTEC [Concomitant]
     Active Substance: CETIRIZINE HYDROCHLORIDE
  35. EPINEPHRINE\LIDOCAINE HYDROCHLORIDE [Concomitant]
     Active Substance: EPINEPHRINE\LIDOCAINE HYDROCHLORIDE
  36. TOBRAMYCIN [Concomitant]
     Active Substance: TOBRAMYCIN
  37. NALTREXONE [Concomitant]
     Active Substance: NALTREXONE
  38. KETOTIFEN [Concomitant]
     Active Substance: KETOTIFEN
  39. EQUILIBRANT [Concomitant]
  40. BUDESONIDE [Concomitant]
     Active Substance: BUDESONIDE
  41. CEPHALEXIN [Concomitant]
     Active Substance: CEPHALEXIN
  42. DIPHENHYDRAMINE [Concomitant]
     Active Substance: DIPHENHYDRAMINE
  43. FLUVOXAMINE [Concomitant]
     Active Substance: FLUVOXAMINE
  44. FLUDROCORTISONE [Concomitant]
     Active Substance: FLUDROCORTISONE
  45. TRELEGY ELLIPTA [Concomitant]
     Active Substance: FLUTICASONE FUROATE\UMECLIDINIUM BROMIDE\VILANTEROL TRIFENATATE
  46. OREGANO LEAF OIL [Concomitant]
     Active Substance: OREGANO LEAF OIL
  47. ATORVASTATIN CALCIUM [Concomitant]
     Active Substance: ATORVASTATIN CALCIUM
  48. COENZYME Q10 [TOCOPHERYL ACETATE;UBIDECARENONE] [Concomitant]
  49. PREDNISONE [Concomitant]
     Active Substance: PREDNISONE
  50. AZELASTINE HYDROCHLORIDE [Concomitant]
     Active Substance: AZELASTINE HYDROCHLORIDE
  51. THYROID [Concomitant]
     Active Substance: LEVOTHYROXINE\LIOTHYRONINE
  52. NEXLETOL [Concomitant]
     Active Substance: BEMPEDOIC ACID
  53. PAXLOVID [Concomitant]
     Active Substance: NIRMATRELVIR\RITONAVIR
  54. MIDODRINE HYDROCHLORIDE [Concomitant]
     Active Substance: MIDODRINE HYDROCHLORIDE
  55. NYSTATIN [Concomitant]
     Active Substance: NYSTATIN
     Route: 048
  56. QULIPTA [Concomitant]
     Active Substance: ATOGEPANT

REACTIONS (37)
  - Mast cell activation syndrome [Unknown]
  - Abdominal infection [Unknown]
  - Fatigue [Unknown]
  - Bradycardia [Unknown]
  - Chest discomfort [Unknown]
  - Generalised oedema [Unknown]
  - Infusion site extravasation [Unknown]
  - Nausea [Unknown]
  - Bronchitis [Recovering/Resolving]
  - Pyrexia [Recovering/Resolving]
  - Pain in jaw [Unknown]
  - Food allergy [Unknown]
  - Migraine [Unknown]
  - Respiratory tract infection [Not Recovered/Not Resolved]
  - Pyrexia [Not Recovered/Not Resolved]
  - Productive cough [Not Recovered/Not Resolved]
  - Dyspnoea [Not Recovered/Not Resolved]
  - Dysphonia [Not Recovered/Not Resolved]
  - COVID-19 [Not Recovered/Not Resolved]
  - Swelling [Unknown]
  - Cough [Not Recovered/Not Resolved]
  - Body temperature decreased [Unknown]
  - Pain in jaw [Unknown]
  - Giardiasis [Unknown]
  - Nasopharyngitis [Unknown]
  - Nasal congestion [Unknown]
  - Wheezing [Unknown]
  - Neck pain [Unknown]
  - Sinusitis [Unknown]
  - Oropharyngeal pain [Not Recovered/Not Resolved]
  - Diarrhoea [Unknown]
  - Headache [Recovering/Resolving]
  - Swelling face [Unknown]
  - Arthralgia [Unknown]
  - Rash [Unknown]
  - Asthma [Recovering/Resolving]
  - Product use in unapproved indication [Unknown]

NARRATIVE: CASE EVENT DATE: 20240517
